FAERS Safety Report 18275644 (Version 1)
Quarter: 2020Q3

REPORT INFORMATION
  Report Type: Spontaneous
  Country: US (occurrence: US)
  Receive Date: 20200917
  Receipt Date: 20200917
  Transmission Date: 20201103
  Serious: No
  Sender: FDA-Public Use
  Company Number: US-BION-008238

PATIENT
  Age: 49 Year
  Sex: Female
  Weight: 58.97 kg

DRUGS (6)
  1. ZYRTEC [Suspect]
     Active Substance: CETIRIZINE HYDROCHLORIDE
     Indication: HYPERSENSITIVITY
     Dosage: 1 LIQUID GEL ONCE A DAY
     Route: 048
     Dates: start: 20190824, end: 20190827
  2. ZYRTEC [Suspect]
     Active Substance: CETIRIZINE HYDROCHLORIDE
     Indication: HYPERSENSITIVITY
     Dosage: 1 LIQUID GEL ONCE A DAY
     Route: 048
     Dates: start: 20190925, end: 20190926
  3. ZYRTEC [Suspect]
     Active Substance: CETIRIZINE HYDROCHLORIDE
     Indication: RHINITIS ALLERGIC
     Dosage: 1 LIQUID GEL ONCE A DAY
     Route: 048
     Dates: start: 20191012, end: 20191013
  4. ZYRTEC [Suspect]
     Active Substance: CETIRIZINE HYDROCHLORIDE
     Indication: HYPERSENSITIVITY
     Dosage: 1 LIQUID GEL ONCE A DAY?LAST DATE OF ADMINISTRATION: 23?NOV?2019
     Route: 048
  5. ZYRTEC [Suspect]
     Active Substance: CETIRIZINE HYDROCHLORIDE
     Indication: HYPERSENSITIVITY
     Dosage: 1 LIQUID GEL ONCE A DAY
     Route: 048
     Dates: start: 20191112, end: 20191113
  6. ZYRTEC [Suspect]
     Active Substance: CETIRIZINE HYDROCHLORIDE
     Indication: HYPERSENSITIVITY
     Dosage: 1 LIQUID GEL ONCE A DAY
     Route: 048
     Dates: start: 20191014, end: 20191015

REACTIONS (5)
  - Vomiting [Recovered/Resolved]
  - Abdominal discomfort [Recovered/Resolved]
  - Diarrhoea [Recovered/Resolved]
  - Nausea [Recovered/Resolved]
  - Illness [Recovered/Resolved]

NARRATIVE: CASE EVENT DATE: 20190826
